FAERS Safety Report 8415307-0 (Version None)
Quarter: 2012Q2

REPORT INFORMATION
  Report Type: 
  Country: None (occurrence: None)
  Receive Date: 20120606
  Receipt Date: 20120531
  Transmission Date: 20120825
  Serious: Yes (Other)
  Sender: FDA-Public Use
  Company Number: FR-SANOFI-AVENTIS-2012SA025125

PATIENT
  Age: 91 Year
  Sex: Male

DRUGS (19)
  1. ATORVASTATIN [Concomitant]
     Dates: start: 20120101
  2. LOVENOX [Concomitant]
     Dates: start: 20120317, end: 20120319
  3. ALFUZOSIN HCL [Suspect]
     Route: 048
     Dates: start: 20120101, end: 20120318
  4. INSULIN DETEMIR [Concomitant]
     Dates: start: 20120315
  5. AUGMENTIN [Concomitant]
     Indication: SEPSIS
     Dates: start: 20120317
  6. AMOXICILLIN [Concomitant]
     Indication: SEPSIS
     Dates: start: 20120317
  7. COLCHICINE [Suspect]
     Route: 048
     Dates: start: 20120301, end: 20120314
  8. CORDARONE [Concomitant]
     Dates: start: 20120101
  9. FUROSEMIDE [Concomitant]
     Dates: start: 20120101
  10. NPH INSULIN [Concomitant]
     Dates: start: 20120301, end: 20120315
  11. ASPIRIN [Concomitant]
     Dates: start: 20120101, end: 20120323
  12. REPAGLINIDE [Concomitant]
     Dates: start: 20120101, end: 20120301
  13. BISOPROLOL FUMARATE [Suspect]
     Route: 048
     Dates: start: 20120301, end: 20120317
  14. TRAMADOL HCL [Concomitant]
     Dates: start: 20120301, end: 20120314
  15. FOLIC ACID [Concomitant]
     Dates: start: 20120301, end: 20120314
  16. ACETAMINOPHEN [Concomitant]
     Dates: start: 20120301
  17. CALCIPARINE [Concomitant]
     Dates: start: 20120316, end: 20120317
  18. NOVORAPID [Concomitant]
     Dates: start: 20120315
  19. ASPIRIN [Concomitant]
     Dates: start: 20120326

REACTIONS (2)
  - DIARRHOEA [None]
  - THROMBOCYTOPENIA [None]
